FAERS Safety Report 8239278-5 (Version None)
Quarter: 2012Q1

REPORT INFORMATION
  Report Type: 
  Country: None (occurrence: None)
  Receive Date: 20120328
  Receipt Date: 20120320
  Transmission Date: 20120608
  Serious: No
  Sender: FDA-Public Use
  Company Number: US-BIOGENIDEC-2012BI009842

PATIENT
  Sex: Female

DRUGS (2)
  1. AVONEX [Suspect]
     Indication: MULTIPLE SCLEROSIS
     Route: 030
     Dates: start: 20020612
  2. AVONEX [Suspect]
     Route: 030
     Dates: start: 20100907

REACTIONS (3)
  - ORAL PAIN [None]
  - MUSCULOSKELETAL STIFFNESS [None]
  - LIMB DISCOMFORT [None]
